FAERS Safety Report 8251682-8 (Version None)
Quarter: 2012Q2

REPORT INFORMATION
  Report Type: 
  Country: None (occurrence: None)
  Receive Date: 20120402
  Receipt Date: 20120328
  Transmission Date: 20120825
  Serious: Yes (Other)
  Sender: FDA-Public Use
  Company Number: US-ABBOTT-12P-163-0919260-00

PATIENT
  Sex: Female
  Weight: 112.59 kg

DRUGS (11)
  1. CALCIUM CARBONATE [Concomitant]
     Indication: DYSPEPSIA
     Dosage: 1 PILL, 2 TOTAL (NEW FORM 1975)
     Route: 048
     Dates: start: 20111222, end: 20120313
  2. FOLIC ACID [Concomitant]
     Indication: PRODUCT USED FOR UNKNOWN INDICATION
     Route: 048
     Dates: start: 20111201, end: 20120313
  3. DHA [Concomitant]
     Indication: PRODUCT USED FOR UNKNOWN INDICATION
     Dosage: 1 PILL ONCE A DAY
     Route: 048
     Dates: start: 20120201, end: 20120313
  4. PROCARDIA XL [Concomitant]
     Indication: HYPERTENSION
     Route: 048
     Dates: start: 20111222, end: 20120313
  5. HUMIRA [Suspect]
     Indication: RHEUMATOID ARTHRITIS
     Dates: start: 20111222, end: 20120206
  6. CAFFEINE CITRATE [Concomitant]
     Indication: PRODUCT USED FOR UNKNOWN INDICATION
     Dosage: 1 SERVING ONCE A DAY
     Route: 048
     Dates: start: 20111222, end: 20120313
  7. INSULIN [Concomitant]
     Indication: TYPE 1 DIABETES MELLITUS
     Dosage: INTRADERMAL, 65 IU ONCE A DAY
     Dates: start: 20111222, end: 20120313
  8. HUMIRA [Suspect]
     Dosage: 40 MG TAKEN 1.6 TIMES A MONTH
     Dates: start: 20120207, end: 20120313
  9. WINE [Concomitant]
     Indication: PRODUCT USED FOR UNKNOWN INDICATION
     Dosage: 1 SERVING, 3 TOTAL
     Route: 048
     Dates: start: 20111222, end: 20120313
  10. RADIATION [Concomitant]
     Indication: RADIOTHERAPY
     Dosage: FOR FACE/SCALP AT 0.5 HOURS ONCE A DAY
     Route: 061
     Dates: start: 20111222, end: 20120313
  11. MULTI-VITAMINS [Concomitant]
     Indication: PRODUCT USED FOR UNKNOWN INDICATION
     Dosage: 1 PILL ONCE A DAY
     Route: 048
     Dates: start: 20111222, end: 20120313

REACTIONS (4)
  - SINUSITIS [None]
  - ABORTION SPONTANEOUS [None]
  - VAGINAL HAEMORRHAGE [None]
  - FOETAL HEART RATE ABNORMAL [None]
